FAERS Safety Report 9264152 (Version 2)
Quarter: 2013Q2

REPORT INFORMATION
  Report Type: Report from Study
  Country: US (occurrence: US)
  Receive Date: 20130430
  Receipt Date: 20130522
  Transmission Date: 20140414
  Serious: Yes (Hospitalization)
  Sender: FDA-Public Use
  Company Number: US-ALEXION-A201300871

PATIENT
  Age: 6 Year
  Sex: Male
  Weight: 20 kg

DRUGS (13)
  1. ECULIZUMAB [Suspect]
     Indication: HAEMOLYTIC URAEMIC SYNDROME
     Dosage: 600 MG, Q2W
     Route: 042
     Dates: start: 20080827
  2. ECULIZUMAB [Suspect]
     Dosage: 300 MG, Q2W
     Route: 042
     Dates: start: 20090225
  3. VEETIDS [Concomitant]
     Indication: PROPHYLAXIS
     Dosage: 5 ML, BID Q12H
     Route: 048
     Dates: start: 20080827
  4. ZYRTEC [Concomitant]
     Indication: HYPERSENSITIVITY
     Dosage: 5 ML, QD
     Route: 048
     Dates: start: 20120322
  5. NASONEX [Concomitant]
     Indication: HYPERSENSITIVITY
     Dosage: 1 SPRAY INTO EACH NOSTRIL QD
     Route: 045
     Dates: start: 20120322
  6. FOLVITE [Concomitant]
     Indication: VITAMIN SUPPLEMENTATION
     Dosage: 1 MG, QD
     Route: 048
     Dates: start: 20080827
  7. VASOTEC [Concomitant]
     Indication: RENAL HYPERTENSION
     Dosage: 2.5 ML, BID
     Route: 048
     Dates: start: 20100104, end: 20110428
  8. VASOTEC [Concomitant]
     Dosage: 4 ML, BID
     Route: 048
  9. ENALAPRIL [Concomitant]
     Indication: RENAL HYPERTENSION
     Dosage: 3 ML, BID
     Route: 048
     Dates: start: 20110428, end: 20121002
  10. ENALAPRIL [Concomitant]
     Dosage: 4 ML, BID
     Route: 048
     Dates: start: 20121002
  11. HEPARIN [Concomitant]
     Indication: PROPHYLAXIS
     Dosage: 10U/ML LOCK FLUSH
     Dates: start: 20080827
  12. SODIUM CHLORIDE [Concomitant]
     Indication: PRODUCT USED FOR UNKNOWN INDICATION
     Dosage: 0.9% LOCK FLUSH 0.5-3 ML / 5-10 ML
  13. EMLA [Concomitant]
     Indication: INJECTION SITE ANAESTHESIA
     Dosage: 2.5-2.5%, APPLY TO SITE 60 MINUTES BEFORE PROCEDURE

REACTIONS (2)
  - Bacteraemia [Recovered/Resolved]
  - Neisseria test positive [Not Recovered/Not Resolved]
